FAERS Safety Report 5131202-7 (Version None)
Quarter: 2006Q4

REPORT INFORMATION
  Report Type: 
  Country: None (occurrence: None)
  Receive Date: 20061017
  Receipt Date: 20061017
  Transmission Date: 20070319
  Serious: Yes (Hospitalization)
  Sender: FDA-Public Use
  Company Number: None

PATIENT
  Age: 26 Year
  Sex: Female
  Weight: 68.0396 kg

DRUGS (2)
  1. AVELOX [Suspect]
     Indication: BRONCHITIS
     Dosage: 1 TABLET 1 PER DAY PO
     Route: 048
     Dates: start: 20061011, end: 20061011
  2. AVELOX [Concomitant]

REACTIONS (12)
  - DIZZINESS [None]
  - FALL [None]
  - HOT FLUSH [None]
  - IMMOBILE [None]
  - MOVEMENT DISORDER [None]
  - MUSCLE TWITCHING [None]
  - MUSCULAR WEAKNESS [None]
  - NERVOUS SYSTEM DISORDER [None]
  - OVERDOSE [None]
  - PARALYSIS [None]
  - SKIN DISCOLOURATION [None]
  - SOMNOLENCE [None]
